FAERS Safety Report 4877803-2 (Version None)
Quarter: 2006Q1

REPORT INFORMATION
  Report Type: 
  Country: None (occurrence: None)
  Receive Date: 20060111
  Receipt Date: 20060103
  Transmission Date: 20060701
  Serious: Yes (Disabling)
  Sender: FDA-Public Use
  Company Number: US-MERCK-0601USA00245

PATIENT
  Sex: Female

DRUGS (1)
  1. VIOXX [Suspect]
     Route: 048
     Dates: start: 19991001, end: 20040801

REACTIONS (4)
  - ANHEDONIA [None]
  - CEREBROVASCULAR ACCIDENT [None]
  - LIFE EXPECTANCY SHORTENED [None]
  - PAIN [None]
